APPROVED DRUG PRODUCT: ETHACRYNIC ACID
Active Ingredient: ETHACRYNIC ACID
Strength: 25MG
Dosage Form/Route: TABLET;ORAL
Application: A208805 | Product #001 | TE Code: AB
Applicant: AMNEAL PHARMACEUTICALS CO GMBH
Approved: May 8, 2018 | RLD: No | RS: No | Type: RX